FAERS Safety Report 14361820 (Version 1)
Quarter: 2018Q1

REPORT INFORMATION
  Report Type: Spontaneous
  Country: US (occurrence: US)
  Receive Date: 20180108
  Receipt Date: 20180108
  Transmission Date: 20180509
  Serious: No
  Sender: FDA-Public Use
  Company Number: US-AUROBINDO-AUR-APU-2016-09926

PATIENT

DRUGS (1)
  1. DEXAMFETAMINE+AMFETAMINE TABLET [Suspect]
     Active Substance: AMPHETAMINE\DEXTROAMPHETAMINE
     Indication: PRODUCT USED FOR UNKNOWN INDICATION
     Route: 065

REACTIONS (8)
  - Fatigue [Unknown]
  - Product substitution issue [Unknown]
  - Dizziness [Unknown]
  - Influenza like illness [Unknown]
  - Palpitations [Unknown]
  - Pain [Unknown]
  - Hyperhidrosis [Unknown]
  - Migraine [Unknown]
